FAERS Safety Report 8310044-5 (Version None)
Quarter: 2012Q2

REPORT INFORMATION
  Report Type: 
  Country: None (occurrence: None)
  Receive Date: 20120423
  Receipt Date: 20120410
  Transmission Date: 20120825
  Serious: Yes (Death, Hospitalization)
  Sender: FDA-Public Use
  Company Number: UTC-017096

PATIENT
  Age: 81 Year
  Sex: Female
  Weight: 51.4 kg

DRUGS (1)
  1. TYVASO [Suspect]
     Indication: PULMONARY ARTERIAL HYPERTENSION
     Dosage: 18-54 MCG (4 IN 1 D), INHALATION
     Route: 055
     Dates: start: 20110727, end: 20120313

REACTIONS (6)
  - UPPER GASTROINTESTINAL HAEMORRHAGE [None]
  - PULSELESS ELECTRICAL ACTIVITY [None]
  - BRADYCARDIA [None]
  - NAUSEA [None]
  - VOMITING [None]
  - BRAIN DEATH [None]
